FAERS Safety Report 12851581 (Version 1)
Quarter: 2016Q4

REPORT INFORMATION
  Report Type: Report from Study
  Country: IN (occurrence: IN)
  Receive Date: 20161016
  Receipt Date: 20161016
  Transmission Date: 20170207
  Serious: Yes (Death, Hospitalization, Other)
  Sender: FDA-Public Use
  Company Number: IN-BAXTER-2016BAX042791

PATIENT
  Age: 56 Year
  Sex: Male
  Weight: 69 kg

DRUGS (7)
  1. DIANEAL LOW CALCIUM WITH DEXTROSE [Suspect]
     Active Substance: CALCIUM CHLORIDE\DEXTROSE\MAGNESIUM CHLORIDE\SODIUM CHLORIDE\SODIUM LACTATE
     Indication: PERITONEAL DIALYSIS
     Route: 033
     Dates: start: 2012, end: 20161004
  2. MIXTARD HUMAN 70/30 [Concomitant]
     Active Substance: INSULIN HUMAN
     Route: 065
  3. REPACE [Concomitant]
     Indication: HYPERTENSION
     Route: 065
  4. MIXTARD HUMAN 70/30 [Concomitant]
     Active Substance: INSULIN HUMAN
     Indication: DIABETES MELLITUS
     Route: 065
  5. ACTRAPID [Concomitant]
     Active Substance: INSULIN HUMAN
     Indication: DIABETES MELLITUS
     Route: 065
  6. ARKAMIN RD [Concomitant]
     Indication: HYPERTENSION
     Route: 065
  7. CALCIGARD RETARD [Concomitant]
     Indication: HYPERTENSION
     Route: 065

REACTIONS (4)
  - Pneumonia [Recovered/Resolved]
  - Blood pressure increased [Unknown]
  - Peritonitis [Recovered/Resolved]
  - Seizure [Fatal]

NARRATIVE: CASE EVENT DATE: 201608
